FAERS Safety Report 10708809 (Version 1)
Quarter: 2015Q1

REPORT INFORMATION
  Report Type: Spontaneous
  Country: US (occurrence: US)
  Receive Date: 20150113
  Receipt Date: 20150113
  Transmission Date: 20150721
  Serious: Yes (Hospitalization)
  Sender: FDA-Public Use
  Company Number: US-AMGEN-USASP2015001213

PATIENT
  Age: 42 Year
  Sex: Female

DRUGS (5)
  1. BEVACIZUMAB [Suspect]
     Active Substance: BEVACIZUMAB
     Indication: BREAST CANCER
     Dosage: UNK MG/KG, UNK
     Route: 042
     Dates: start: 20090331, end: 20090811
  2. CYCLOPHOSPHAMIDE. [Suspect]
     Active Substance: CYCLOPHOSPHAMIDE
     Indication: BREAST CANCER
     Dosage: 600 MG/M2, IV OVER 20-30-MIN ON DAY 1 (600 MG/M2)
     Route: 042
     Dates: start: 20090331, end: 20090811
  3. PACLITAXEL. [Suspect]
     Active Substance: PACLITAXEL
     Indication: BREAST CANCER
     Dosage: 80 MG/M2, OVER 1 HR DAYS 1,8,15 (80 MG/M2, 3 IN 1 CYCLICAL)
     Route: 042
     Dates: start: 20090331, end: 20090811
  4. PEGFILGRASTIM [Suspect]
     Active Substance: PEGFILGRASTIM
     Indication: BREAST CANCER
     Dosage: 6 MG, UNK, ON DAY 2
     Route: 058
     Dates: start: 20090331, end: 20090811
  5. DOXORUBICIN [Suspect]
     Active Substance: DOXORUBICIN
     Indication: BREAST CANCER
     Dosage: 60 MG/M2, ON DAY 1 (60 MG/M2)
     Route: 040
     Dates: start: 20090331, end: 20090811

REACTIONS (9)
  - Infarction [Unknown]
  - Pulmonary embolism [Unknown]
  - Dyspnoea [Recovered/Resolved]
  - Embolism [Recovered/Resolved]
  - Embolism [Unknown]
  - Confusional state [Recovered/Resolved]
  - Muscular weakness [Recovered/Resolved]
  - Back pain [Recovered/Resolved]
  - Hypoxia [Recovered/Resolved]

NARRATIVE: CASE EVENT DATE: 20090823
